FAERS Safety Report 4457657-9 (Version None)
Quarter: 2004Q3

REPORT INFORMATION
  Report Type: 
  Country: None (occurrence: None)
  Receive Date: 20040922
  Receipt Date: 20040916
  Transmission Date: 20050211
  Serious: Yes (Hospitalization)
  Sender: FDA-Public Use
  Company Number: MK200409-0125-1

PATIENT
  Age: 65 Year
  Sex: Female

DRUGS (5)
  1. TOFRANIL TAB [Suspect]
  2. ROPIVACAINE [Suspect]
  3. MEPIVACAINE [Concomitant]
  4. NEUROTROPIN [Concomitant]
  5. REBAMIPIDE [Concomitant]

REACTIONS (7)
  - ALANINE AMINOTRANSFERASE INCREASED [None]
  - ANOREXIA [None]
  - BLOOD ALKALINE PHOSPHATASE INCREASED [None]
  - BLOOD BILIRUBIN INCREASED [None]
  - FATIGUE [None]
  - GAMMA-GLUTAMYLTRANSFERASE INCREASED [None]
  - LIVER DISORDER [None]
